FAERS Safety Report 11512059 (Version 1)
Quarter: 2015Q3

REPORT INFORMATION
  Report Type: Report from Study
  Country: US (occurrence: US)
  Receive Date: 20150916
  Receipt Date: 20150916
  Transmission Date: 20151125
  Serious: Yes (Hospitalization, Other)
  Sender: FDA-Public Use
  Company Number: US-ABBVIE-15K-163-1462250-00

PATIENT
  Sex: Male
  Weight: 39.04 kg

DRUGS (1)
  1. HUMIRA [Suspect]
     Active Substance: ADALIMUMAB
     Indication: CROHN^S DISEASE
     Route: 058
     Dates: start: 201411, end: 20150704

REACTIONS (4)
  - Crohn^s disease [Unknown]
  - Weight decreased [Recovered/Resolved]
  - Ileus [Recovered/Resolved]
  - Gastrointestinal disorder postoperative [Recovered/Resolved]

NARRATIVE: CASE EVENT DATE: 20150808
